FAERS Safety Report 11317028 (Version 5)
Quarter: 2015Q4

REPORT INFORMATION
  Report Type: Report from Study
  Country: JP (occurrence: JP)
  Receive Date: 20150728
  Receipt Date: 20151029
  Transmission Date: 20160304
  Serious: Yes (Death, Life-Threatening, Disabling, Other)
  Sender: FDA-Public Use
  Company Number: JP-OTSUKA-2015_006042

PATIENT

DRUGS (23)
  1. TOLVAPTAN [Suspect]
     Active Substance: TOLVAPTAN
     Indication: FLUID RETENTION
     Dosage: 3.75 MG, QD
     Route: 048
     Dates: start: 20150225, end: 20150301
  2. TOLVAPTAN [Suspect]
     Active Substance: TOLVAPTAN
     Dosage: 7.5 MG, QD
     Route: 048
     Dates: start: 20150302, end: 20150406
  3. HUMULIN R [Concomitant]
     Active Substance: INSULIN HUMAN
     Indication: PRODUCT USED FOR UNKNOWN INDICATION
     Dosage: 6 IU/DAY
     Route: 042
     Dates: start: 20150218, end: 20150219
  4. CEFAZOLIN SODIUM. [Concomitant]
     Active Substance: CEFAZOLIN SODIUM
     Indication: CHOLANGITIS
     Dosage: 2 G/DAY
     Route: 041
     Dates: start: 20150218, end: 20150227
  5. ATARAX [Concomitant]
     Active Substance: HYDROXYZINE\HYDROXYZINE HYDROCHLORIDE
     Indication: PRODUCT USED FOR UNKNOWN INDICATION
     Dosage: 25 MG/DAY
     Route: 030
     Dates: start: 20150218, end: 20150218
  6. SPIRONOLACTONE. [Concomitant]
     Active Substance: SPIRONOLACTONE
     Indication: FLUID RETENTION
     Dosage: 25 MG/DAY
     Route: 048
     Dates: start: 20150219, end: 20150406
  7. HYDROCORTONE FOSFAT [Concomitant]
     Indication: FLUID RETENTION
     Dosage: 100 MG/DAY
     Route: 042
     Dates: start: 20150221, end: 20150221
  8. DECADRON [Concomitant]
     Active Substance: DEXAMETHASONE
     Indication: FLUID RETENTION
     Dosage: 4 MG/DAY
     Route: 048
     Dates: start: 20150320, end: 20150327
  9. ALBUMIN [Concomitant]
     Active Substance: ALBUMIN (HUMAN)
     Indication: ABDOMINAL CAVITY DRAINAGE
     Dosage: 25 G/DAY
     Route: 042
     Dates: start: 20150223, end: 20150223
  10. LANTUS [Concomitant]
     Active Substance: INSULIN GLARGINE
     Indication: PRODUCT USED FOR UNKNOWN INDICATION
     Dosage: 6 IU/DAY
     Route: 058
     Dates: end: 20150406
  11. PARIET [Concomitant]
     Active Substance: RABEPRAZOLE SODIUM
     Indication: ABDOMINAL PAIN UPPER
     Dosage: 10 MG/DAY
     Route: 048
     Dates: start: 20150220, end: 20150406
  12. DECADRON [Concomitant]
     Active Substance: DEXAMETHASONE
     Dosage: 2 MG/DAY
     Route: 048
     Dates: start: 20150328, end: 20150406
  13. NORVASC [Concomitant]
     Active Substance: AMLODIPINE BESYLATE
     Indication: PRODUCT USED FOR UNKNOWN INDICATION
     Dosage: 10 MG/DAY
     Route: 048
     Dates: end: 20150406
  14. SOLDEM 3A [Concomitant]
     Active Substance: CARBOHYDRATES\POTASSIUM CHLORIDE\SODIUM CHLORIDE\SODIUM LACTATE
     Indication: DECREASED APPETITE
     Dosage: 1000 ML/DAY
     Route: 041
     Dates: start: 20150218, end: 20150219
  15. HEPARIN SODIUM. [Concomitant]
     Active Substance: HEPARIN SODIUM
     Indication: PROPHYLAXIS
     Dosage: 2000 IU/DAY
     Route: 042
     Dates: start: 20150218, end: 20150227
  16. FUROSEMIDE. [Concomitant]
     Active Substance: FUROSEMIDE
     Indication: FLUID RETENTION
     Dosage: 20 MG/DAY
     Route: 048
     Dates: start: 20150219, end: 20150306
  17. GLIMEPIRIDE. [Concomitant]
     Active Substance: GLIMEPIRIDE
     Indication: PRODUCT USED FOR UNKNOWN INDICATION
     Dosage: 1 MG/DAY
     Route: 048
     Dates: end: 20150406
  18. HYDROCORTONE FOSFAT [Concomitant]
     Indication: INFLAMMATION
  19. FUROSEMIDE. [Concomitant]
     Active Substance: FUROSEMIDE
     Dosage: 40 MG/DAY
     Route: 048
     Dates: start: 20150307, end: 20150406
  20. PENTAGIN [Concomitant]
     Active Substance: PENTAZOCINE HYDROCHLORIDE
     Indication: PRODUCT USED FOR UNKNOWN INDICATION
     Dosage: 15 MG/DAY
     Route: 030
     Dates: start: 20150218, end: 20150218
  21. GRANISETRON [Concomitant]
     Active Substance: GRANISETRON
     Indication: PRODUCT USED FOR UNKNOWN INDICATION
     Dosage: 3 MG/DAY
     Route: 041
     Dates: start: 20150218, end: 20150218
  22. AZILVA [Concomitant]
     Active Substance: AZILSARTAN KAMEDOXOMIL
     Indication: PRODUCT USED FOR UNKNOWN INDICATION
     Dosage: 40 MG/DAY
     Route: 048
     Dates: end: 20150406
  23. BENZALIN [Concomitant]
     Active Substance: NITRAZEPAM
     Indication: INSOMNIA
     Dosage: 5 MG/DAY
     Route: 048
     Dates: end: 20150406

REACTIONS (7)
  - Cancer pain [Not Recovered/Not Resolved]
  - Dyspnoea [Not Recovered/Not Resolved]
  - Hepatic enzyme increased [Not Recovered/Not Resolved]
  - Hepatic encephalopathy [Not Recovered/Not Resolved]
  - Hepatorenal syndrome [Not Recovered/Not Resolved]
  - Pruritus [Not Recovered/Not Resolved]
  - Liver disorder [Fatal]

NARRATIVE: CASE EVENT DATE: 20150303
